FAERS Safety Report 4465934-0 (Version None)
Quarter: 2004Q3

REPORT INFORMATION
  Report Type: 
  Country: None (occurrence: None)
  Receive Date: 20040930
  Receipt Date: 20040930
  Transmission Date: 20050211
  Serious: Yes (Disabling)
  Sender: FDA-Public Use
  Company Number: None

PATIENT
  Sex: Female
  Weight: 56.6996 kg

DRUGS (1)
  1. PREDNISONE  2 MG- TO 60 MG  VARIED OVER 30 YRS [Suspect]
     Indication: ASTHMA

REACTIONS (3)
  - ADRENAL DISORDER [None]
  - DRUG DEPENDENCE [None]
  - PAIN [None]
